FAERS Safety Report 14076166 (Version 1)
Quarter: 2017Q4

REPORT INFORMATION
  Report Type: Spontaneous
  Country: US (occurrence: US)
  Receive Date: 20171010
  Receipt Date: 20171010
  Transmission Date: 20180321
  Serious: No
  Sender: FDA-Public Use
  Company Number: US-MYLANLABS-2017M1009893

PATIENT
  Age: 66 Year
  Sex: Female
  Weight: 58.96 kg

DRUGS (2)
  1. ATENOLOL TABLETS, USP [Suspect]
     Active Substance: ATENOLOL
     Indication: CORONARY ARTERY OCCLUSION
     Dosage: 25 MG, QD
     Route: 048
     Dates: start: 20170105
  2. ACETYLSALICYLIC ACID [Concomitant]
     Active Substance: ASPIRIN
     Indication: PRODUCT USED FOR UNKNOWN INDICATION
     Dosage: UNK

REACTIONS (5)
  - Musculoskeletal stiffness [Not Recovered/Not Resolved]
  - Asthenia [Not Recovered/Not Resolved]
  - Neck pain [Not Recovered/Not Resolved]
  - Decreased appetite [Not Recovered/Not Resolved]
  - Fatigue [Not Recovered/Not Resolved]

NARRATIVE: CASE EVENT DATE: 201702
